FAERS Safety Report 7815404-4 (Version None)
Quarter: 2011Q4

REPORT INFORMATION
  Report Type: 
  Country: None (occurrence: None)
  Receive Date: 20111014
  Receipt Date: 20111003
  Transmission Date: 20120403
  Serious: Yes (Other)
  Sender: FDA-Public Use
  Company Number: PHHY2011PK89221

PATIENT

DRUGS (8)
  1. WARFARIN SODIUM [Suspect]
     Dosage: 2.5 MG, UNK
  2. METOPROLOL TARTRATE [Suspect]
  3. WARFARIN SODIUM [Suspect]
     Dosage: 5 MG DAILY
  4. PROTAMINE SULFATE [Suspect]
     Dosage: 1 MG/100 UNITS OF HEPARIN
  5. ASPIRIN [Suspect]
  6. HEPARIN [Suspect]
     Dosage: 300 U/KG
  7. DIGOXIN [Suspect]
  8. WARFARIN SODIUM [Suspect]
     Dosage: 5 MG

REACTIONS (3)
  - PREMATURE BABY [None]
  - SMALL FOR DATES BABY [None]
  - MATERNAL EXPOSURE DURING PREGNANCY [None]
